FAERS Safety Report 20608915 (Version 2)
Quarter: 2022Q1

REPORT INFORMATION
  Report Type: Spontaneous
  Country: JP (occurrence: JP)
  Receive Date: 20220317
  Receipt Date: 20220323
  Transmission Date: 20220424
  Serious: Yes (Other)
  Sender: FDA-Public Use
  Company Number: JP-DSJP-DSJ-2022-108527

PATIENT
  Age: 4 Decade
  Sex: Female

DRUGS (3)
  1. PRASUGREL HYDROCHLORIDE [Suspect]
     Active Substance: PRASUGREL HYDROCHLORIDE
     Indication: Carotid artery aneurysm
     Dosage: UNK UNK, QD
     Route: 065
  2. ALTEPLASE [Suspect]
     Active Substance: ALTEPLASE
     Indication: Carotid artery occlusion
     Dosage: UNK
     Route: 042
  3. ASPIRIN [Concomitant]
     Active Substance: ASPIRIN
     Indication: Carotid artery aneurysm
     Dosage: UNK
     Route: 065

REACTIONS (3)
  - Cerebral haemorrhage [Unknown]
  - Carotid artery occlusion [Recovered/Resolved]
  - Off label use [Unknown]
